FAERS Safety Report 5209632-4 (Version None)
Quarter: 2007Q1

REPORT INFORMATION
  Report Type: 
  Country: None (occurrence: None)
  Receive Date: 20070116
  Receipt Date: 20070104
  Transmission Date: 20070707
  Serious: Yes (Hospitalization)
  Sender: FDA-Public Use
  Company Number: PFIZER INC-2006153270

PATIENT
  Age: 40 Year
  Sex: Female

DRUGS (3)
  1. CAMPTOSAR [Suspect]
     Indication: COLON CANCER
     Dosage: DAILY DOSE:100MG
  2. TEGAFUR/GIMERACIL/OTERACIL POTASSIUM [Suspect]
     Indication: COLON CANCER
     Route: 048
  3. NOVAMIN [Suspect]

REACTIONS (1)
  - MANIA [None]
